FAERS Safety Report 4810395-2 (Version None)
Quarter: 2005Q4

REPORT INFORMATION
  Report Type: 
  Country: None (occurrence: None)
  Receive Date: 20051024
  Receipt Date: 20051013
  Transmission Date: 20060501
  Serious: Yes (Hospitalization, Other)
  Sender: FDA-Public Use
  Company Number: 2005-03913

PATIENT
  Age: 1 Year
  Sex: Female
  Weight: 13 kg

DRUGS (4)
  1. TRELSTAR DEPOT [Suspect]
     Indication: HAMARTOMA
     Dosage: 1.88 MG, SINGLE, INTRAMUSCULAR
     Route: 030
     Dates: start: 20050909
  2. TRELSTAR DEPOT [Suspect]
     Indication: HYPOTHALAMO-PITUITARY DISORDERS
     Dosage: 1.88 MG, SINGLE, INTRAMUSCULAR
     Route: 030
     Dates: start: 20050909
  3. TRELSTAR DEPOT [Suspect]
     Indication: PRECOCIOUS PUBERTY
     Dosage: 1.88 MG, SINGLE, INTRAMUSCULAR
     Route: 030
     Dates: start: 20050909
  4. CALCIUM GLUCONATE [Concomitant]

REACTIONS (7)
  - FACE OEDEMA [None]
  - GENERALISED ERYTHEMA [None]
  - JOINT SWELLING [None]
  - OFF LABEL USE [None]
  - PRURITUS [None]
  - RASH GENERALISED [None]
  - RASH PAPULAR [None]
